FAERS Safety Report 18098154 (Version 1)
Quarter: 2020Q3

REPORT INFORMATION
  Report Type: Report from Study
  Country: FR (occurrence: FR)
  Receive Date: 20200731
  Receipt Date: 20200731
  Transmission Date: 20201103
  Serious: Yes (Other)
  Sender: FDA-Public Use
  Company Number: FR-MYLANLABS-2020M1068650

PATIENT
  Sex: Female

DRUGS (3)
  1. VALPROIC ACID. [Suspect]
     Active Substance: VALPROIC ACID
     Indication: CLONIC CONVULSION
     Route: 065
  2. PHENYTOIN. [Concomitant]
     Active Substance: PHENYTOIN
     Indication: CLONIC CONVULSION
     Route: 042
  3. PYRIDOXINE [Suspect]
     Active Substance: PYRIDOXINE
     Indication: CLONIC CONVULSION
     Route: 065

REACTIONS (1)
  - Drug ineffective [Unknown]
